FAERS Safety Report 19860147 (Version 1)
Quarter: 2021Q3

REPORT INFORMATION
  Report Type: Spontaneous
  Country: US (occurrence: US)
  Receive Date: 20210921
  Receipt Date: 20210921
  Transmission Date: 20211014
  Serious: No
  Sender: FDA-Public Use
  Company Number: None

PATIENT
  Age: 37 Year
  Sex: Female

DRUGS (1)
  1. DUPIXENT [Suspect]
     Active Substance: DUPILUMAB
     Indication: ASTHMA
     Dates: start: 20210608

REACTIONS (4)
  - Exposure via skin contact [None]
  - Wrong technique in product usage process [None]
  - Accidental exposure to product [None]
  - Device malfunction [None]

NARRATIVE: CASE EVENT DATE: 20210920
